FAERS Safety Report 24213838 (Version 1)
Quarter: 2024Q3

REPORT INFORMATION
  Report Type: Report from Study
  Country: GB (occurrence: GB)
  Receive Date: 20240815
  Receipt Date: 20240815
  Transmission Date: 20241017
  Serious: Yes (Hospitalization)
  Sender: BAXTER
  Company Number: GB-BAXTER-2024BAX022836

PATIENT
  Sex: Female

DRUGS (11)
  1. CERNEVIT [Suspect]
     Active Substance: VITAMINS
     Indication: Parenteral nutrition
     Dosage: UNSPECIFIED DOSE, HPN/ TPN REGIME FOR 5 TIMES A WEEK IN 2000 ML
     Route: 065
  2. WATER FOR INJECTION [Suspect]
     Active Substance: WATER
     Indication: Parenteral nutrition
     Dosage: UNSPECIFIED DOSE, HPN/ TPN REGIME FOR 5 TIMES A WEEK IN 2000 ML
     Route: 065
  3. DEXTROSE [Suspect]
     Active Substance: DEXTROSE\DEXTROSE MONOHYDRATE
     Indication: Parenteral nutrition
     Dosage: UNSPECIFIED DOSE, HPN/ TPN REGIME FOR 5 TIMES A WEEK IN 2000 ML
     Route: 065
  4. SYNTHAMIN [Suspect]
     Active Substance: AMINO ACIDS
     Indication: Parenteral nutrition
     Dosage: UNSPECIFIED DOSE, HPN/ TPN REGIME FOR 5 TIMES A WEEK IN 2000 ML
     Route: 065
  5. IRON\MINERALS\POTASSIUM IOD\SODIUM FLUORIDE\SODIUM MOLYBDATE\SODIUM SE [Suspect]
     Active Substance: IRON\MINERALS\POTASSIUM IOD\SODIUM FLUORIDE\SODIUM MOLYBDATE\SODIUM SELENITE\ZINC
     Indication: Parenteral nutrition
     Dosage: (MANUFACTURER: LABORATOIRE AGUETTANT S.A.S), UNSPECIFIED DOSE, HPN/ TPN REGIME FOR 5 TIMES A WEEK IN
     Route: 065
  6. CALCIUM CHLORIDE [Suspect]
     Active Substance: CALCIUM CHLORIDE
     Indication: Parenteral nutrition
     Dosage: UNSPECIFIED DOSE, HPN/ TPN REGIME FOR 5 TIMES A WEEK IN 2000 ML
     Route: 065
  7. MAGNESIUM SULFATE [Suspect]
     Active Substance: MAGNESIUM SULFATE\MAGNESIUM SULFATE HEPTAHYDRATE
     Indication: Parenteral nutrition
     Dosage: UNSPECIFIED DOSE, HPN/ TPN REGIME FOR 5 TIMES A WEEK IN 2000 ML
     Route: 065
  8. SODIUM CHLORIDE [Suspect]
     Active Substance: SODIUM CHLORIDE
     Indication: Parenteral nutrition
     Dosage: UNSPECIFIED DOSE, HPN/ TPN REGIME FOR 5 TIMES A WEEK IN 2000 ML
     Route: 065
  9. SODIUM GLYCEROPHOSPHATE [Suspect]
     Active Substance: SODIUM GLYCEROPHOSPHATE
     Indication: Parenteral nutrition
     Dosage: UNSPECIFIED DOSE, HPN/ TPN REGIME FOR 5 TIMES A WEEK IN 2000 ML
     Route: 065
  10. WATER FOR INJECTION [Suspect]
     Active Substance: WATER
     Indication: Parenteral nutrition
     Dosage: UNSPECIFIED DOSE, HPN/ TPN REGIME FOR 5 TIMES A WEEK IN 2000 ML
     Route: 065
  11. UNSPECIFIED INGREDIENT [Suspect]
     Active Substance: UNSPECIFIED INGREDIENT
     Route: 065

REACTIONS (2)
  - Abdominal pain [Unknown]
  - Back pain [Unknown]
